FAERS Safety Report 10269140 (Version 3)
Quarter: 2014Q3

REPORT INFORMATION
  Report Type: Report from Study
  Country: CA (occurrence: CA)
  Receive Date: 20140630
  Receipt Date: 20140702
  Transmission Date: 20150326
  Serious: Yes (Hospitalization, Other)
  Sender: FDA-Public Use
  Company Number: CA-ABBVIE-14P-028-1226777-00

PATIENT
  Age: 71 Year
  Sex: Female

DRUGS (2)
  1. HUMIRA [Suspect]
     Active Substance: ADALIMUMAB
     Route: 058
     Dates: start: 20140428, end: 20140428
  2. HUMIRA [Suspect]
     Active Substance: ADALIMUMAB
     Indication: CROHN^S DISEASE
     Route: 058
     Dates: start: 20121119, end: 20140330

REACTIONS (4)
  - Suffocation feeling [Unknown]
  - Anxiety [Unknown]
  - Hypersensitivity [Unknown]
  - Allergic respiratory symptom [Unknown]

NARRATIVE: CASE EVENT DATE: 201404
